FAERS Safety Report 6772031-8 (Version None)
Quarter: 2010Q2

REPORT INFORMATION
  Report Type: 
  Country: None (occurrence: None)
  Receive Date: 20100611
  Receipt Date: 20100603
  Transmission Date: 20101027
  Serious: Yes (Other)
  Sender: FDA-Public Use
  Company Number: 8001914

PATIENT
  Age: 63 Year
  Sex: Female

DRUGS (7)
  1. LEVETIRACETAM [Suspect]
     Indication: COMPLEX PARTIAL SEIZURES
     Dosage: 1000 MG, 500 MG, 1000 MG, 1500 MG, 1000 MG
     Dates: start: 20020201
  2. LEVETIRACETAM [Suspect]
     Indication: COMPLEX PARTIAL SEIZURES
     Dosage: 1000 MG, 500 MG, 1000 MG, 1500 MG, 1000 MG
     Dates: start: 20020401
  3. LEVETIRACETAM [Suspect]
     Indication: COMPLEX PARTIAL SEIZURES
     Dosage: 1000 MG, 500 MG, 1000 MG, 1500 MG, 1000 MG
     Dates: start: 20020501
  4. LEVETIRACETAM [Suspect]
     Indication: COMPLEX PARTIAL SEIZURES
     Dosage: 1000 MG, 500 MG, 1000 MG, 1500 MG, 1000 MG
     Dates: start: 20020801
  5. CARBAMAZEPINE [Concomitant]
  6. CLONAZEPAM [Concomitant]
  7. SERTRALINE HCL [Concomitant]

REACTIONS (8)
  - ABDOMINAL PAIN UPPER [None]
  - ABNORMAL FAECES [None]
  - COLITIS [None]
  - CONVULSION [None]
  - DEPRESSION [None]
  - FATIGUE [None]
  - HEPATIC CYST [None]
  - WEIGHT DECREASED [None]
